FAERS Safety Report 5271210-9 (Version None)
Quarter: 2007Q1

REPORT INFORMATION
  Report Type: 
  Country: None (occurrence: None)
  Receive Date: 20070321
  Receipt Date: 20070315
  Transmission Date: 20070707
  Serious: Yes (Disabling)
  Sender: FDA-Public Use
  Company Number: US-MERCK-0703USA03016

PATIENT
  Age: 77 Year
  Sex: Female

DRUGS (2)
  1. ZETIA [Suspect]
     Indication: BLOOD CHOLESTEROL INCREASED
     Route: 048
     Dates: end: 20061101
  2. PROZAC [Concomitant]
     Route: 065
     Dates: end: 20060101

REACTIONS (9)
  - ASTHENIA [None]
  - BACK PAIN [None]
  - CHOLECYSTITIS [None]
  - FEELING HOT [None]
  - GAIT DISTURBANCE [None]
  - GALLBLADDER DISORDER [None]
  - MALAISE [None]
  - SYNCOPE [None]
  - VOMITING [None]
